FAERS Safety Report 24690164 (Version 1)
Quarter: 2024Q4

REPORT INFORMATION
  Report Type: Spontaneous
  Country: US (occurrence: None)
  Receive Date: 20241202
  Receipt Date: 20241202
  Transmission Date: 20250115
  Serious: Yes (Hospitalization)
  Sender: Public
  Company Number: None

PATIENT
  Sex: Female

DRUGS (1)
  1. VIGABATRIN [Suspect]
     Active Substance: VIGABATRIN
     Indication: Lennox-Gastaut syndrome
     Dosage: OTHER FREQUENCY : 13MLMORNING,15MLINTHE EVENING ;?
     Route: 048
     Dates: start: 202311

REACTIONS (2)
  - Seizure [None]
  - Viral infection [None]
